FAERS Safety Report 11124940 (Version 4)
Quarter: 2015Q2

REPORT INFORMATION
  Report Type: Spontaneous
  Country: IT (occurrence: IT)
  Receive Date: 20150520
  Receipt Date: 20150526
  Transmission Date: 20150821
  Serious: Yes (Hospitalization)
  Sender: FDA-Public Use
  Company Number: IT-WATSON-2015-09887

PATIENT
  Age: 66 Year
  Sex: Female

DRUGS (6)
  1. AVASTIN [Suspect]
     Active Substance: BEVACIZUMAB
     Indication: OVARIAN CANCER
     Dosage: 820 MG, DAILY
     Route: 065
     Dates: start: 20140613, end: 20150307
  2. TRIMETON [Concomitant]
     Active Substance: CHLORPHENIRAMINE MALEATE
     Indication: PRODUCT USED FOR UNKNOWN INDICATION
     Dosage: 1 DF, UNKNOWN
     Route: 042
  3. CARBOPLATIN (UNKNOWN) [Suspect]
     Active Substance: CARBOPLATIN
     Indication: OVARIAN CANCER
     Dosage: 480 MG, DAILY
     Route: 065
     Dates: start: 20140613, end: 20141010
  4. PANTORC [Concomitant]
     Active Substance: PANTOPRAZOLE SODIUM
     Indication: PRODUCT USED FOR UNKNOWN INDICATION
     Dosage: 1 DF, UNKNOWN
     Route: 042
  5. DEXAMETHASONE                      /00016002/ [Concomitant]
     Active Substance: DEXAMETHASONE SODIUM PHOSPHATE
     Indication: PRODUCT USED FOR UNKNOWN INDICATION
     Dosage: 20 MG, UNKNOWN
     Route: 042
  6. PACLITAXEL (UNKNOWN) [Suspect]
     Active Substance: PACLITAXEL
     Indication: OVARIAN CANCER
     Dosage: 260 MG, DAILY
     Route: 065
     Dates: start: 20140613, end: 20141010

REACTIONS (2)
  - Leukocytosis [Unknown]
  - Blast cells present [Unknown]

NARRATIVE: CASE EVENT DATE: 20150326
